FAERS Safety Report 8276012-7 (Version None)
Quarter: 2012Q2

REPORT INFORMATION
  Report Type: 
  Country: None (occurrence: None)
  Receive Date: 20120410
  Receipt Date: 20120410
  Transmission Date: 20120825
  Serious: No
  Sender: FDA-Public Use
  Company Number: None

PATIENT
  Age: 15 Month
  Sex: Female

DRUGS (2)
  1. ACETAMINOPHEN [Suspect]
     Dosage: SUPPOSITORY
     Route: 054
  2. ACETAMINOPHEN [Suspect]
     Dosage: SUPPOSITORY
     Route: 054

REACTIONS (6)
  - MEDICATION ERROR [None]
  - ASPARTATE AMINOTRANSFERASE INCREASED [None]
  - ALANINE AMINOTRANSFERASE INCREASED [None]
  - DRUG DISPENSING ERROR [None]
  - INCORRECT DOSE ADMINISTERED [None]
  - COAGULOPATHY [None]
